FAERS Safety Report 8505321-9 (Version None)
Quarter: 2012Q3

REPORT INFORMATION
  Report Type: 
  Country: None (occurrence: None)
  Receive Date: 20120712
  Receipt Date: 20120706
  Transmission Date: 20120928
  Serious: Yes (Disabling)
  Sender: FDA-Public Use
  Company Number: GB-PFIZER INC-2012162197

PATIENT
  Age: 47 Year
  Sex: Female
  Weight: 109.3 kg

DRUGS (20)
  1. DIAZEPAM [Concomitant]
     Dates: start: 20120330
  2. WARFARIN SODIUM [Concomitant]
     Dates: start: 20120412
  3. PROCHLORPERAZINE [Concomitant]
     Dates: start: 20120524
  4. METRONIDAZOLE [Suspect]
     Indication: URINARY TRACT INFECTION
     Dosage: 400 MG, 3X/DAY
     Dates: start: 20120607, end: 20120614
  5. AMITRIPTYLINE HCL [Concomitant]
     Dates: start: 20120330
  6. ESOMEPRAZOLE [Concomitant]
     Dates: start: 20120412
  7. FLUTICASONE PROPIONATE/SALMETEROL [Concomitant]
     Dates: start: 20120412, end: 20120510
  8. EXENATIDE [Concomitant]
     Dates: start: 20120312
  9. CYCLIZINE [Concomitant]
     Dates: start: 20120419, end: 20120517
  10. INADINE [Concomitant]
     Dates: start: 20120314, end: 20120411
  11. MULTI-VITAMINS [Concomitant]
     Dates: start: 20120412
  12. VENTOLIN [Concomitant]
     Dates: start: 20120412, end: 20120510
  13. CODEINE PHOSPHATE [Concomitant]
     Dates: start: 20120524, end: 20120607
  14. TRIMETHOPRIM [Concomitant]
     Dates: start: 20120608, end: 20120613
  15. ATENOLOL [Concomitant]
     Dates: start: 20120412
  16. FLUCLOXACILLIN [Concomitant]
     Dates: start: 20120328, end: 20120329
  17. TRAMADOL HCL [Concomitant]
     Dates: start: 20120412, end: 20120510
  18. NOVOLOG MIX 70/30 [Concomitant]
     Dates: start: 20120522
  19. SITAGLIPTIN [Concomitant]
     Dates: start: 20120305
  20. TEMAZEPAM [Concomitant]
     Dates: start: 20120403, end: 20120404

REACTIONS (2)
  - DYSPNOEA [None]
  - ASTHMA [None]
